FAERS Safety Report 4294910-6 (Version None)
Quarter: 2004Q1

REPORT INFORMATION
  Report Type: 
  Country: None (occurrence: None)
  Receive Date: 20040216
  Receipt Date: 20030218
  Transmission Date: 20041129
  Serious: No
  Sender: FDA-Public Use
  Company Number: US-GLAXOSMITHKLINE-A0397516A

PATIENT
  Age: 47 Year
  Sex: Male
  Weight: 72.7 kg

DRUGS (1)
  1. LAMICTAL [Suspect]
     Dosage: 600MG PER DAY
     Route: 048

REACTIONS (1)
  - HYPERTROPHY BREAST [None]
